FAERS Safety Report 7265081-9 (Version None)
Quarter: 2011Q1

REPORT INFORMATION
  Report Type: 
  Country: None (occurrence: None)
  Receive Date: 20110131
  Receipt Date: 20110118
  Transmission Date: 20110831
  Serious: Yes (Other)
  Sender: FDA-Public Use
  Company Number: SG-PAR PHARMACEUTICAL, INC-2011SCPR002639

PATIENT
  Sex: Female

DRUGS (4)
  1. ALPRAZOLAM [Suspect]
     Indication: OBSESSIVE-COMPULSIVE DISORDER
     Dosage: 0.25 MG, TID
     Route: 065
  2. FLUOXETINE [Suspect]
     Indication: PANIC ATTACK
  3. ALPRAZOLAM [Suspect]
     Indication: PANIC ATTACK
     Dosage: HALF TABLET OF 0.25 MG
     Route: 065
  4. FLUOXETINE [Suspect]
     Indication: OBSESSIVE-COMPULSIVE DISORDER
     Dosage: 20 MG, IN THE MORNING
     Route: 065

REACTIONS (4)
  - FEELING ABNORMAL [None]
  - SOMNOLENCE [None]
  - DRUG INTERACTION [None]
  - SUICIDAL IDEATION [None]
